FAERS Safety Report 12867223 (Version 1)
Quarter: 2016Q4

REPORT INFORMATION
  Report Type: Spontaneous
  Country: US (occurrence: US)
  Receive Date: 20161020
  Receipt Date: 20161020
  Transmission Date: 20170207
  Serious: No
  Sender: FDA-Public Use
  Company Number: US-JAZZ-2016-US-014841

PATIENT
  Age: 47 Year
  Sex: Female

DRUGS (26)
  1. AMOXICILLIN. [Concomitant]
     Active Substance: AMOXICILLIN
  2. PRAMIPEXOLE. [Concomitant]
     Active Substance: PRAMIPEXOLE
  3. MIRTAZAPINE. [Concomitant]
     Active Substance: MIRTAZAPINE
  4. MIRAPEX ER [Concomitant]
     Active Substance: PRAMIPEXOLE DIHYDROCHLORIDE
  5. ALBUTEROL SULFATE HFA [Concomitant]
     Active Substance: ALBUTEROL SULFATE
  6. ANTIPYRINE/BENZOCAINE [Concomitant]
  7. HYDROCODONE/ACETAMINOPHEN [Concomitant]
     Active Substance: ACETAMINOPHEN\HYDROCODONE
  8. XYREM [Suspect]
     Active Substance: SODIUM OXYBATE
     Dosage: 2.25 G, BID
     Route: 048
     Dates: start: 201507
  9. GABAPENTIN. [Concomitant]
     Active Substance: GABAPENTIN
  10. TEMAZEPAM. [Concomitant]
     Active Substance: TEMAZEPAM
  11. FLONASE ALLERGY RELIEF [Concomitant]
     Active Substance: FLUTICASONE PROPIONATE
  12. IBUPROFEN. [Concomitant]
     Active Substance: IBUPROFEN
  13. FLEXERIL [Concomitant]
     Active Substance: CYCLOBENZAPRINE HYDROCHLORIDE
  14. XYREM [Suspect]
     Active Substance: SODIUM OXYBATE
     Indication: NARCOLEPSY
     Dosage: 2.25 G, BID
     Route: 048
     Dates: start: 201101, end: 201104
  15. AURODEX [Concomitant]
     Active Substance: ANTIPYRINE\BENZOCAINE
  16. ALBUTEROL SULFATE. [Concomitant]
     Active Substance: ALBUTEROL SULFATE
  17. FLONASE [Concomitant]
     Active Substance: FLUTICASONE PROPIONATE
  18. TYLENOL COLD MULTI SYMPTOM DAYTIME [Concomitant]
  19. ZITHROMAX [Concomitant]
     Active Substance: AZITHROMYCIN DIHYDRATE
  20. XYREM [Suspect]
     Active Substance: SODIUM OXYBATE
     Dosage: 2.25 G, QD
     Route: 048
     Dates: start: 201104, end: 2011
  21. HYDROCODONE BITARTRATE AND ACETAMINOPHEN [Concomitant]
     Active Substance: ACETAMINOPHEN\HYDROCODONE BITARTRATE
  22. HYDROXYZINE HCL [Concomitant]
     Active Substance: HYDROXYZINE HYDROCHLORIDE
  23. METHYLPHENIDATE. [Concomitant]
     Active Substance: METHYLPHENIDATE
  24. RITALIN LA [Concomitant]
     Active Substance: METHYLPHENIDATE HYDROCHLORIDE
  25. AZITHROMYCIN ANHYDROUS. [Concomitant]
     Active Substance: AZITHROMYCIN ANHYDROUS
  26. PHENYLEPHRINE-DM-GG-APAP [Concomitant]

REACTIONS (4)
  - Therapeutic response unexpected [Unknown]
  - Allergy to animal [Unknown]
  - Pre-existing condition improved [Unknown]
  - Mite allergy [Unknown]

NARRATIVE: CASE EVENT DATE: 201607
